FAERS Safety Report 8913837 (Version 2)
Quarter: 2012Q4

REPORT INFORMATION
  Report Type: Report from Study
  Country: CA (occurrence: CA)
  Receive Date: 20121116
  Receipt Date: 20121203
  Transmission Date: 20130627
  Serious: Yes (Hospitalization, Disabling, Other)
  Sender: FDA-Public Use
  Company Number: CA-BIOGENIDEC-2012BI052023

PATIENT
  Age: 49 Year
  Sex: Female

DRUGS (6)
  1. TYSABRI [Suspect]
     Indication: MULTIPLE SCLEROSIS
     Route: 042
     Dates: start: 20080423
  2. NAPROXYN [Concomitant]
     Route: 048
  3. NAPROXYN [Concomitant]
     Indication: INFLAMMATION
     Route: 048
  4. CITALOPRAM [Concomitant]
     Indication: DEPRESSION
     Route: 048
  5. TYLENOL NUMBER 3 [Concomitant]
     Route: 048
  6. TRAMADOL [Concomitant]
     Indication: PAIN

REACTIONS (1)
  - Syncope [Recovered/Resolved]
